FAERS Safety Report 15731340 (Version 1)
Quarter: 2018Q4

REPORT INFORMATION
  Report Type: Spontaneous
  Country: FR (occurrence: FR)
  Receive Date: 20181217
  Receipt Date: 20181217
  Transmission Date: 20190205
  Serious: Yes (Hospitalization, Other)
  Sender: FDA-Public Use
  Company Number: FR-JNJFOC-20181215403

PATIENT
  Age: 45 Year
  Sex: Female

DRUGS (3)
  1. TENOFOVIR [Suspect]
     Active Substance: TENOFOVIR
     Indication: HIV INFECTION
     Route: 065
  2. DARUNAVIR ETHANOLATE. [Suspect]
     Active Substance: DARUNAVIR ETHANOLATE
     Indication: HIV INFECTION
     Route: 065
  3. EMTRICITABINE [Suspect]
     Active Substance: EMTRICITABINE
     Indication: HIV INFECTION
     Route: 065

REACTIONS (7)
  - HIV infection [Not Recovered/Not Resolved]
  - Cerebellar ataxia [Unknown]
  - Disease recurrence [Not Recovered/Not Resolved]
  - Treatment noncompliance [Not Recovered/Not Resolved]
  - Cerebellar syndrome [Unknown]
  - Anxiety [Unknown]
  - HIV-associated neurocognitive disorder [Not Recovered/Not Resolved]

NARRATIVE: CASE EVENT DATE: 2013
